FAERS Safety Report 18920197 (Version 2)
Quarter: 2021Q2

REPORT INFORMATION
  Report Type: Spontaneous
  Country: US (occurrence: US)
  Receive Date: 20210222
  Receipt Date: 20210517
  Transmission Date: 20210717
  Serious: Yes (Death, Other)
  Sender: FDA-Public Use
  Company Number: US-JNJFOC-20210227065

PATIENT
  Age: 13 Year
  Sex: Female
  Weight: 56.75 kg

DRUGS (1)
  1. JBABY BABY POWDER UNSPECIFIED [ZINC OXIDE] [Suspect]
     Active Substance: ZINC OXIDE
     Indication: PRODUCT USED FOR UNKNOWN INDICATION
     Dosage: A QUARTER SIZE DAILY
     Route: 061
     Dates: start: 199203, end: 2005

REACTIONS (1)
  - Ovarian cancer [Fatal]

NARRATIVE: CASE EVENT DATE: 20050523
